FAERS Safety Report 8381123-1 (Version None)
Quarter: 2012Q2

REPORT INFORMATION
  Report Type: 
  Country: None (occurrence: None)
  Receive Date: 20120523
  Receipt Date: 20120509
  Transmission Date: 20120825
  Serious: Yes (Other)
  Sender: FDA-Public Use
  Company Number: DE-ELI_LILLY_AND_COMPANY-DE201205003455

PATIENT
  Age: 62 Year
  Sex: Female

DRUGS (1)
  1. GEMZAR [Suspect]
     Indication: PANCREATIC CARCINOMA
     Dosage: 1500 MG, UNK
     Route: 042
     Dates: start: 20120503

REACTIONS (2)
  - DRUG-INDUCED LIVER INJURY [None]
  - TRANSAMINASES INCREASED [None]
